FAERS Safety Report 17956277 (Version 1)
Quarter: 2020Q2

REPORT INFORMATION
  Report Type: Report from Study
  Country: US (occurrence: US)
  Receive Date: 20200629
  Receipt Date: 20200629
  Transmission Date: 20200714
  Serious: Yes (Hospitalization, Other)
  Sender: FDA-Public Use
  Company Number: NVSC2020US176742

PATIENT
  Sex: Female

DRUGS (8)
  1. PROTONIX [Concomitant]
     Active Substance: PANTOPRAZOLE SODIUM
     Indication: PRODUCT USED FOR UNKNOWN INDICATION
     Dosage: 40 MG, BID (1 DF) (REFILLS-0)
     Route: 048
     Dates: start: 20200228
  2. LOSARTAN. [Concomitant]
     Active Substance: LOSARTAN
     Indication: PRODUCT USED FOR UNKNOWN INDICATION
     Dosage: 25 MG, QD
     Route: 048
  3. LASIX [Concomitant]
     Active Substance: FUROSEMIDE
     Indication: PRODUCT USED FOR UNKNOWN INDICATION
     Dosage: 20 MG, QD (REFILLS-6)
     Route: 048
     Dates: start: 20200204
  4. ASPIRIN. [Concomitant]
     Active Substance: ASPIRIN
     Indication: HEADACHE
     Dosage: 325 MG, QD  (REFILLS 0)
     Route: 048
     Dates: start: 20160909
  5. ENTRESTO [Suspect]
     Active Substance: SACUBITRIL\VALSARTAN
     Indication: PRODUCT USED FOR UNKNOWN INDICATION
     Dosage: 1 DF, BID (24/26 MG), REFILLS-3
     Route: 048
     Dates: start: 20200217
  6. METOPROLOL SUCCINATE. [Concomitant]
     Active Substance: METOPROLOL SUCCINATE
     Indication: PRODUCT USED FOR UNKNOWN INDICATION
     Dosage: 1 DF, QD (50 MG), REFILLS-5
     Route: 048
  7. POTASSIUM CHLORIDE. [Concomitant]
     Active Substance: POTASSIUM CHLORIDE
     Indication: PRODUCT USED FOR UNKNOWN INDICATION
     Dosage: 1 DF, QD (MEQ), REFILLS-6
     Route: 048
     Dates: start: 20200204
  8. PROTONIX [Concomitant]
     Active Substance: PANTOPRAZOLE SODIUM
     Dosage: 40 MG, QD (1 DF)
     Route: 048
     Dates: start: 20200306

REACTIONS (13)
  - Dyspnoea [Unknown]
  - Chest pain [Unknown]
  - Abdominal pain lower [Unknown]
  - Nausea [Unknown]
  - Pyrexia [Unknown]
  - Cardiomegaly [Unknown]
  - Leukocytosis [Unknown]
  - Congestive cardiomyopathy [Unknown]
  - Hypokinesia [Unknown]
  - Blood pressure decreased [Unknown]
  - Mitral valve disease [Unknown]
  - Vomiting [Unknown]
  - Diarrhoea [Unknown]
